FAERS Safety Report 5518372-3 (Version None)
Quarter: 2007Q4

REPORT INFORMATION
  Report Type: 
  Country: None (occurrence: None)
  Receive Date: 20071113
  Receipt Date: 20071113
  Transmission Date: 20080405
  Serious: No
  Sender: FDA-Public Use
  Company Number: None

PATIENT
  Sex: Female
  Weight: 49.8957 kg

DRUGS (3)
  1. BUTALBITAL ACETAMINOPHEN AND CAFFEINE [Suspect]
     Indication: HEADACHE
     Dosage: 1+1/2 TABLET  TWICE DAILY  PO
     Route: 048
     Dates: start: 20071030, end: 20071110
  2. BUTALBITAL ACETAMINOPHEN AND CAFFEINE [Suspect]
     Indication: MIGRAINE
     Dosage: 1+1/2 TABLET  TWICE DAILY  PO
     Route: 048
     Dates: start: 20071030, end: 20071110
  3. FIORICET [Suspect]

REACTIONS (4)
  - DRUG INEFFECTIVE [None]
  - NAUSEA [None]
  - PHARMACEUTICAL PRODUCT COMPLAINT [None]
  - SOMNOLENCE [None]
